FAERS Safety Report 20194523 (Version 1)
Quarter: 2021Q4

REPORT INFORMATION
  Report Type: Spontaneous
  Country: US (occurrence: None)
  Receive Date: 20211216
  Receipt Date: 20211216
  Transmission Date: 20220303
  Serious: Yes (Hospitalization)
  Sender: FDA-Public Use
  Company Number: None

PATIENT
  Sex: Female

DRUGS (7)
  1. GLATIRAMER [Suspect]
     Active Substance: GLATIRAMER
     Indication: Multiple sclerosis
     Route: 058
     Dates: start: 20190109
  2. AMANTADINE CAP [Concomitant]
  3. AMITRIPTYLIN TAB [Concomitant]
  4. BACLOFEN [Concomitant]
  5. METOPROL TAR TAB [Concomitant]
  6. MULTIPLEVITAMIN TAB WOMENS [Concomitant]
  7. VITAMIN B-12 [Concomitant]

REACTIONS (2)
  - COVID-19 [None]
  - Pneumonia [None]
